FAERS Safety Report 4502420-3 (Version None)
Quarter: 2004Q4

REPORT INFORMATION
  Report Type: 
  Country: None (occurrence: None)
  Receive Date: 20041109
  Receipt Date: 20041026
  Transmission Date: 20050328
  Serious: No
  Sender: FDA-Public Use
  Company Number: A02200403088

PATIENT
  Age: 67 Year
  Sex: Female

DRUGS (3)
  1. ELOXATINE - (OXALIPLATIN) - SOLUTION - 5 MG/ML [Suspect]
     Indication: COLON CANCER METASTATIC
     Dosage: 100 MG/M2 OTHER INTRAVENOUS NOS
     Route: 042
     Dates: start: 20040929, end: 20041001
  2. FLUOROURACIL [Concomitant]
  3. ELVORINE (CALCIUM LEVOFOLINATE) [Concomitant]

REACTIONS (2)
  - BLINDNESS TRANSIENT [None]
  - HALLUCINATION [None]
